FAERS Safety Report 9790930 (Version 1)
Quarter: 2013Q4

REPORT INFORMATION
  Report Type: Spontaneous
  Country: FR (occurrence: FR)
  Receive Date: 20131231
  Receipt Date: 20131231
  Transmission Date: 20140711
  Serious: Yes (Hospitalization)
  Sender: FDA-Public Use
  Company Number: FR-ABBVIE-13P-056-1182850-00

PATIENT
  Sex: 0

DRUGS (12)
  1. KALETRA [Suspect]
     Indication: MATERNAL EXPOSURE TIMING UNSPECIFIED
     Route: 064
  2. COMBIVIR [Suspect]
     Indication: MATERNAL EXPOSURE TIMING UNSPECIFIED
     Route: 064
  3. RETROVIR [Suspect]
     Indication: PROPHYLAXIS AGAINST HIV INFECTION
     Route: 048
     Dates: start: 20130619, end: 20130731
  4. IMMUNOGLOBIN HBV [Concomitant]
     Indication: PRODUCT USED FOR UNKNOWN INDICATION
  5. UVESTROL [Concomitant]
     Indication: PRODUCT USED FOR UNKNOWN INDICATION
  6. SPECIAFOLDINE [Concomitant]
     Indication: PRODUCT USED FOR UNKNOWN INDICATION
  7. FUMAFER [Concomitant]
     Indication: PRODUCT USED FOR UNKNOWN INDICATION
  8. PARACETAMOL [Concomitant]
     Indication: PRODUCT USED FOR UNKNOWN INDICATION
     Dosage: SOMETIMES
  9. ENGERIXB 20 [Concomitant]
     Indication: PRODUCT USED FOR UNKNOWN INDICATION
     Dates: start: 20131019
  10. INFANRIX HEXA [Concomitant]
     Indication: PRODUCT USED FOR UNKNOWN INDICATION
     Dates: start: 20131019
  11. PREVENAR 13 [Concomitant]
     Indication: PRODUCT USED FOR UNKNOWN INDICATION
     Dates: start: 20131019
  12. PREVENAR [Concomitant]
     Indication: PRODUCT USED FOR UNKNOWN INDICATION

REACTIONS (5)
  - Ovarian granulosa cell tumour [Not Recovered/Not Resolved]
  - Ascites [Not Recovered/Not Resolved]
  - Foetal exposure during pregnancy [Unknown]
  - Diarrhoea [Unknown]
  - Inguinal hernia [Unknown]
